FAERS Safety Report 9248396 (Version 1)
Quarter: 2013Q1

REPORT INFORMATION
  Report Type: Spontaneous
  Country: US (occurrence: None)
  Receive Date: 20130305
  Receipt Date: 20130305
  Transmission Date: 20140127
  Serious: Yes (Other)
  Sender: FDA-Public Use
  Company Number: 163-21880-12092374

PATIENT
  Age: 74 Year
  Sex: Female

DRUGS (4)
  1. REVLIMID [Suspect]
     Indication: PLASMA CELL MYELOMA
     Dosage: 1 IN 1 D
     Route: 048
     Dates: start: 20120830
  2. ACYCLOVIR (ACICLOVIR) [Concomitant]
  3. QVAR (BECLOMETASONE DIPROPIONATE) [Concomitant]
  4. SINGULAIR [Concomitant]

REACTIONS (6)
  - Fatigue [None]
  - Constipation [None]
  - Dizziness [None]
  - Hyperhidrosis [None]
  - Vision blurred [None]
  - Oropharyngeal pain [None]
